FAERS Safety Report 22260361 (Version 1)
Quarter: 2023Q2

REPORT INFORMATION
  Report Type: Spontaneous
  Country: US (occurrence: None)
  Receive Date: 20230425
  Receipt Date: 20230425
  Transmission Date: 20230721
  Serious: Yes (Death)
  Sender: FDA-Public Use
  Company Number: None

PATIENT
  Age: 64 Year
  Sex: Female
  Weight: 51.26 kg

DRUGS (7)
  1. RETACRIT [Suspect]
     Active Substance: EPOETIN ALFA-EPBX
     Indication: Pancreatic carcinoma
     Dosage: 10,000UNITS WEEKLY SUBCUTANEOUS?
     Route: 058
  2. ABRAXANE [Concomitant]
     Active Substance: PACLITAXEL
  3. ATORVASTATIN [Concomitant]
     Active Substance: ATORVASTATIN
  4. GABAPENTIN [Concomitant]
     Active Substance: GABAPENTIN
  5. METOPROLOL [Concomitant]
     Active Substance: METOPROLOL
  6. NIVESTYM [Concomitant]
     Active Substance: FILGRASTIM-AAFI
  7. OXYCODONE [Concomitant]
     Active Substance: OXYCODONE

REACTIONS (1)
  - Death [None]

NARRATIVE: CASE EVENT DATE: 20230415
